FAERS Safety Report 8549050-4 (Version None)
Quarter: 2012Q3

REPORT INFORMATION
  Report Type: 
  Country: None (occurrence: None)
  Receive Date: 20120730
  Receipt Date: 20120724
  Transmission Date: 20120928
  Serious: No
  Sender: FDA-Public Use
  Company Number: US-PFIZER INC-2012180047

PATIENT
  Sex: Female
  Weight: 62.585 kg

DRUGS (21)
  1. SUTENT [Suspect]
     Indication: RENAL CELL CARCINOMA
     Dosage: 50 MG, 1X/DAY
     Route: 048
     Dates: start: 20110520, end: 20120130
  2. ARANESP [Concomitant]
     Dosage: 500, FOR 21 DAYS
     Dates: start: 20120401
  3. SINEMET [Concomitant]
     Indication: RESTLESS LEGS SYNDROME
     Dosage: 10 MG/100 MG, 1 TABLET, AT BEDTIME
     Route: 048
  4. LEVAQUIN [Concomitant]
     Indication: INFECTION
     Dosage: ONE TIME A DAY
     Dates: start: 20110320
  5. COLACE [Concomitant]
     Dosage: 100 MG, 2X/DAY
     Dates: start: 20110601
  6. SYNTHROID [Concomitant]
     Indication: HYPOTHYROIDISM
     Dosage: 100 UG, ONE TIME A DAY AT 6 AM
     Route: 048
  7. AFINITOR [Concomitant]
     Indication: RENAL CELL CARCINOMA
     Dosage: 10 MG, 1X/DAY
     Dates: start: 20120310
  8. CALCIUM WITH VITAMIN D [Concomitant]
     Dosage: 2X/DAY
  9. XGEVA [Concomitant]
     Dosage: 120 MG, MONTHLY
     Dates: start: 20120201
  10. CELEXA [Concomitant]
     Dosage: UNK
     Dates: start: 20120309
  11. LISINOPRIL AND HYDROCHLOROTHIAZIDE [Concomitant]
     Indication: HYPERTENSION
     Dosage: 10 MG/12.5 MG 1 TABLET, ONE TIME A DAY
     Route: 048
     Dates: start: 20110315
  12. MORPHINE [Concomitant]
     Dosage: 15 MG, AT HS
     Dates: start: 20120601
  13. VIVELLE [Concomitant]
     Dosage: 0.5 MG, 2X/DAY
  14. AMBIEN [Concomitant]
     Dosage: 2X/DAY
  15. SYNTHROID [Concomitant]
     Dosage: 75 UG, DAILY
  16. MIRALAX [Concomitant]
     Dosage: AS NEEDED
  17. NORVASC [Concomitant]
     Dosage: 5 MG, 1X/DAY
     Route: 048
     Dates: start: 20110501
  18. PHENAZOPYRIDINE HCL TAB [Concomitant]
     Indication: BLADDER PAIN
     Dosage: 100 MG, 3 TIMES A DAY AS NEEDED
     Route: 048
     Dates: end: 20110321
  19. POTASSIUM CHLORIDE [Concomitant]
     Dosage: 20 MG, 1X/DAY
  20. OMEPRAZOLE MAGNESIUM [Concomitant]
     Dosage: 20 MG, 1X/DAY
  21. PROMETHAZINE [Concomitant]
     Dosage: 25 MG, DAILY, AS NEEDED
     Route: 048

REACTIONS (2)
  - RENAL CELL CARCINOMA [None]
  - DISEASE PROGRESSION [None]
